FAERS Safety Report 25532130 (Version 1)
Quarter: 2025Q3

REPORT INFORMATION
  Report Type: Spontaneous
  Country: EU (occurrence: EU)
  Receive Date: 20250709
  Receipt Date: 20250709
  Transmission Date: 20251021
  Serious: Yes (Other)
  Sender: EMD SERONO INC
  Company Number: EU-Merck Healthcare KGaA-2025033985

PATIENT
  Sex: Female

DRUGS (2)
  1. GLUCOPHAGE XR [Suspect]
     Active Substance: METFORMIN HYDROCHLORIDE
     Indication: Product used for unknown indication
  2. GLUCOPHAGE XR [Suspect]
     Active Substance: METFORMIN HYDROCHLORIDE

REACTIONS (8)
  - Coma [Unknown]
  - Memory impairment [Not Recovered/Not Resolved]
  - Skin exfoliation [Recovered/Resolved]
  - Visual impairment [Not Recovered/Not Resolved]
  - Visual acuity reduced [Not Recovered/Not Resolved]
  - Somnolence [Unknown]
  - Feeling abnormal [Not Recovered/Not Resolved]
  - Product blister packaging issue [Unknown]

NARRATIVE: CASE EVENT DATE: 20240101
